FAERS Safety Report 21608629 (Version 5)
Quarter: 2023Q2

REPORT INFORMATION
  Report Type: Spontaneous
  Country: US (occurrence: US)
  Receive Date: 20221117
  Receipt Date: 20230605
  Transmission Date: 20230722
  Serious: No
  Sender: FDA-Public Use
  Company Number: US-PFIZER INC-PV202200103751

PATIENT
  Age: 84 Year
  Sex: Female

DRUGS (3)
  1. XELJANZ XR [Suspect]
     Active Substance: TOFACITINIB CITRATE
     Indication: Rheumatoid arthritis
     Dosage: 11 MG, DAILY
     Route: 048
     Dates: start: 2019
  2. INFLUENZA VIRUS VACCINE [Concomitant]
     Active Substance: INFLUENZA VIRUS VACCINE
     Dosage: DOSE NUMBER UNKNOWN, SINGLE
  3. PNEUMOCOCCAL VACCINE POLYVALENT NOS [Concomitant]
     Active Substance: PNEUMOCOCCAL VACCINE POLYVALENT
     Dosage: DOSE NUMBER UNKNOWN, SINGLE

REACTIONS (13)
  - Condition aggravated [Unknown]
  - Arthralgia [Unknown]
  - Sensitivity to weather change [Unknown]
  - Streptococcal infection [Unknown]
  - Malaise [Unknown]
  - Nausea [Unknown]
  - Abdominal discomfort [Unknown]
  - Vertigo [Unknown]
  - Vomiting [Unknown]
  - Infection [Unknown]
  - Cough [Recovered/Resolved]
  - Upper respiratory tract congestion [Recovered/Resolved]
  - Product dose omission in error [Unknown]

NARRATIVE: CASE EVENT DATE: 20221001
